FAERS Safety Report 22795747 (Version 2)
Quarter: 2025Q1

REPORT INFORMATION
  Report Type: Spontaneous
  Country: US (occurrence: US)
  Receive Date: 20230807
  Receipt Date: 20250331
  Transmission Date: 20250408
  Serious: Yes (Other)
  Sender: MERCK SHARP & DOHME LLC
  Company Number: US-009507513-2307USA009917

PATIENT
  Age: 76 Year
  Sex: Female

DRUGS (3)
  1. KEYTRUDA [Suspect]
     Active Substance: PEMBROLIZUMAB
     Indication: Sarcomatoid carcinoma of the lung
     Dosage: DOSE DESCRIPTION : UNK
     Route: 042
     Dates: start: 20230110, end: 20250128
  2. PEMETREXED [Concomitant]
     Active Substance: PEMETREXED
     Indication: Chemotherapy
  3. CISPLATIN [Concomitant]
     Active Substance: CISPLATIN
     Indication: Chemotherapy

REACTIONS (5)
  - Eosinophilic fasciitis [Unknown]
  - Rash [Not Recovered/Not Resolved]
  - Mixed connective tissue disease [Unknown]
  - Pruritus [Unknown]
  - Oedema peripheral [Unknown]

NARRATIVE: CASE EVENT DATE: 20230611
